FAERS Safety Report 6768910 (Version 3)
Quarter: 2013Q2

REPORT INFORMATION
  Report Type: Spontaneous
  Country: US (occurrence: US)
  Receive Date: 20080924
  Receipt Date: 20130429
  Transmission Date: 20140414
  Serious: Yes (Other)
  Sender: FDA-Public Use
  Company Number: US-ASTRAZENECA-2006UW24517

PATIENT
  Age: 10227 Day
  Sex: Male
  Weight: 102.5 kg

DRUGS (24)
  1. NEXIUM [Suspect]
     Route: 048
  2. SEROQUEL [Suspect]
     Indication: SCHIZOPHRENIA
     Route: 048
     Dates: start: 199801
  3. SEROQUEL [Suspect]
     Indication: BIPOLAR DISORDER
     Route: 048
     Dates: start: 199801
  4. SEROQUEL [Suspect]
     Indication: DEPRESSION
     Route: 048
     Dates: start: 199801
  5. SEROQUEL [Suspect]
     Indication: SCHIZOPHRENIA
     Route: 048
     Dates: start: 2002
  6. SEROQUEL [Suspect]
     Indication: BIPOLAR DISORDER
     Route: 048
     Dates: start: 2002
  7. SEROQUEL [Suspect]
     Indication: DEPRESSION
     Route: 048
     Dates: start: 2002
  8. SEROQUEL [Suspect]
     Indication: SCHIZOPHRENIA
     Dosage: 200-900 MG
     Route: 048
     Dates: start: 20030219
  9. SEROQUEL [Suspect]
     Indication: BIPOLAR DISORDER
     Dosage: 200-900 MG
     Route: 048
     Dates: start: 20030219
  10. SEROQUEL [Suspect]
     Indication: DEPRESSION
     Dosage: 200-900 MG
     Route: 048
     Dates: start: 20030219
  11. ABILIFY [Concomitant]
  12. CLOZARIL [Concomitant]
  13. GEODON [Concomitant]
  14. RISPERDAL [Concomitant]
  15. THORAZINE [Concomitant]
  16. TRILAFON [Concomitant]
  17. ZYPREXA [Concomitant]
  18. DEPAKOTE [Concomitant]
     Dates: start: 2002
  19. ATIVAN [Concomitant]
     Dates: start: 2000
  20. TRIAVIL [Concomitant]
     Indication: SLEEP DISORDER
     Dates: start: 2000
  21. PREVACID [Concomitant]
     Indication: GASTROOESOPHAGEAL REFLUX DISEASE
     Dates: start: 20030219
  22. NORVASC [Concomitant]
     Indication: HYPERTENSION
     Route: 048
     Dates: start: 2006
  23. VALIUM [Concomitant]
     Dates: start: 2005
  24. LITHIUM [Concomitant]
     Dosage: 100-900 MG
     Dates: start: 2005

REACTIONS (7)
  - Diabetic coma [Unknown]
  - Pancreatitis [Unknown]
  - Diabetes mellitus inadequate control [Unknown]
  - Neuropathy peripheral [Unknown]
  - Osteoporosis [Unknown]
  - Multiple fractures [Unknown]
  - Bone disorder [Unknown]
